FAERS Safety Report 24060280 (Version 1)
Quarter: 2024Q3

REPORT INFORMATION
  Report Type: Spontaneous
  Country: US (occurrence: US)
  Receive Date: 20240708
  Receipt Date: 20240708
  Transmission Date: 20241016
  Serious: Yes (Hospitalization, Other)
  Sender: RIGEL PHARMACEUTICALS
  Company Number: US-RIGEL Pharmaceuticals, INC-20240700006

PATIENT
  Age: 77 Year
  Sex: Female

DRUGS (1)
  1. TAVALISSE [Suspect]
     Active Substance: FOSTAMATINIB
     Indication: Immune thrombocytopenia
     Dosage: 100 003
     Route: 048
     Dates: start: 20211212

REACTIONS (6)
  - Urinary tract infection [Unknown]
  - Disorientation [Unknown]
  - Unresponsive to stimuli [Unknown]
  - Neuroendocrine tumour [Unknown]
  - Neoplasm progression [Unknown]
  - Dizziness [Unknown]

NARRATIVE: CASE EVENT DATE: 20240627
